FAERS Safety Report 13311641 (Version 2)
Quarter: 2017Q3

REPORT INFORMATION
  Report Type: Spontaneous
  Country: CH (occurrence: CH)
  Receive Date: 20170308
  Receipt Date: 20170728
  Transmission Date: 20171127
  Serious: Yes (Disabling)
  Sender: FDA-Public Use
  Company Number: CH-ABBVIE-17P-151-1898520-00

PATIENT
  Sex: Male
  Weight: 75 kg

DRUGS (2)
  1. LEVOBUPIVACAINE [Suspect]
     Active Substance: LEVOBUPIVACAINE
     Dosage: 60 HOURS
     Route: 042
  2. LEVOBUPIVACAINE [Suspect]
     Active Substance: LEVOBUPIVACAINE
     Indication: NEUROMUSCULAR BLOCKADE
     Route: 065
     Dates: start: 2011, end: 2011

REACTIONS (2)
  - Nervous system disorder [Unknown]
  - Drug administration error [Recovered/Resolved with Sequelae]

NARRATIVE: CASE EVENT DATE: 2011
